FAERS Safety Report 8443398-X (Version None)
Quarter: 2012Q2

REPORT INFORMATION
  Report Type: 
  Country: None (occurrence: None)
  Receive Date: 20120618
  Receipt Date: 20120607
  Transmission Date: 20120825
  Serious: Yes (Hospitalization, Other)
  Sender: FDA-Public Use
  Company Number: US-ACCORD-013694

PATIENT
  Age: 61 Year
  Sex: Male

DRUGS (13)
  1. VITAMIN E [Concomitant]
  2. ENALAPRIL [Concomitant]
  3. VITAMIN B-12 [Concomitant]
  4. ASCORBIC ACID [Concomitant]
  5. ECHINACEA [Interacting]
  6. PROCHLORPERAZINE [Concomitant]
  7. LAETRILE INJ [Interacting]
  8. HYDROCODONE BITARTRATE + ACETAMINOPHEN [Concomitant]
  9. ETOPOSIDE [Suspect]
     Dosage: ON DAYS 1 THROUGH 5
     Route: 042
  10. CISPLATIN [Interacting]
     Dosage: ON DAY 1
     Route: 042
  11. ONDANSETRON [Concomitant]
  12. VITAMIN D [Concomitant]
  13. OMEPRAZOLE [Concomitant]

REACTIONS (5)
  - THROMBOCYTOPENIA [None]
  - SEIZURE LIKE PHENOMENA [None]
  - FEBRILE NEUTROPENIA [None]
  - DRUG INTERACTION [None]
  - OFF LABEL USE [None]
